FAERS Safety Report 12328724 (Version 1)
Quarter: 2016Q2

REPORT INFORMATION
  Report Type: Spontaneous
  Country: US (occurrence: US)
  Receive Date: 20160503
  Receipt Date: 20160503
  Transmission Date: 20160815
  Serious: No
  Sender: FDA-Public Use
  Company Number: US-BEH-2015050376

PATIENT
  Sex: Male
  Weight: 36 kg

DRUGS (14)
  1. DIPHENHYDRAMINE. [Concomitant]
     Active Substance: DIPHENHYDRAMINE
     Dosage: 25 MG AS DIRECTED
     Route: 048
  2. HIZENTRA [Suspect]
     Active Substance: HUMAN IMMUNOGLOBULIN G
     Indication: IMMUNODEFICIENCY COMMON VARIABLE
     Dosage: 4 G 20 ML VIAL
     Route: 058
  3. FLAXSEED [Concomitant]
     Active Substance: FLAX SEED
     Route: 048
  4. LIDOCAINE. [Concomitant]
     Active Substance: LIDOCAINE
     Dosage: 4% TOPICALLY AS DIRECTED
     Route: 061
  5. LIDOCAINE/PRILOCAINE [Concomitant]
     Dosage: 2.5% AS DIRECTED
     Route: 061
  6. MELATONIN [Concomitant]
     Active Substance: MELATONIN
     Route: 048
  7. ALOE VERA [Concomitant]
     Active Substance: ALOE VERA LEAF
     Route: 048
  8. PROBIOTIC AND ACIDOPHILUS [Concomitant]
     Route: 048
  9. EPIPEN [Concomitant]
     Active Substance: EPINEPHRINE
  10. DIGESTIVE ENZYMES [Concomitant]
     Active Substance: UNSPECIFIED INGREDIENT
     Route: 048
  11. COD LIVER OIL [Concomitant]
     Active Substance: COD LIVER OIL
     Dosage: 4000-400/5 LIQUID (I TABLE SPOON BY MOUTH TWICE DAILY)
     Route: 048
  12. ACETAMINOPHEN. [Concomitant]
     Active Substance: ACETAMINOPHEN
     Dosage: 325 MG AS DIRECTED
     Route: 048
  13. FOCALIN XR [Concomitant]
     Active Substance: DEXMETHYLPHENIDATE HYDROCHLORIDE
     Route: 048
  14. MAGNESIUM [Concomitant]
     Active Substance: MAGNESIUM
     Route: 048

REACTIONS (2)
  - Nausea [Recovered/Resolved]
  - Diarrhoea [Recovered/Resolved]
